FAERS Safety Report 6221217-X (Version None)
Quarter: 2009Q2

REPORT INFORMATION
  Report Type: 
  Country: None (occurrence: None)
  Receive Date: 20090610
  Receipt Date: 20090601
  Transmission Date: 20091009
  Serious: Yes (Death, Hospitalization)
  Sender: FDA-Public Use
  Company Number: US-AMGEN-US346831

PATIENT
  Sex: Male

DRUGS (11)
  1. NPLATE [Suspect]
     Indication: IDIOPATHIC THROMBOCYTOPENIC PURPURA
     Route: 065
     Dates: start: 20090130, end: 20090410
  2. SYNTHROID [Concomitant]
     Route: 065
  3. MAGNESIUM OXIDE [Concomitant]
     Route: 065
  4. HUMIBID - SLOW RELEASE [Concomitant]
     Route: 065
  5. DEMADEX [Concomitant]
     Route: 065
  6. ALBUTEROL [Concomitant]
     Route: 065
  7. SURFAK [Concomitant]
     Route: 065
  8. BACTROBAN [Concomitant]
     Route: 065
  9. NEXIUM [Concomitant]
     Route: 065
  10. LACTULOSE [Concomitant]
     Route: 065
  11. COREG [Concomitant]
     Route: 065

REACTIONS (4)
  - RENAL FAILURE [None]
  - RESPIRATORY FAILURE [None]
  - SEPTIC SHOCK [None]
  - STAPHYLOCOCCAL SEPSIS [None]
